FAERS Safety Report 5773794-0 (Version None)
Quarter: 2008Q2

REPORT INFORMATION
  Report Type: 
  Country: None (occurrence: None)
  Receive Date: 20080616
  Receipt Date: 20080606
  Transmission Date: 20081010
  Serious: Yes (Death, Hospitalization)
  Sender: FDA-Public Use
  Company Number: JP-ABBOTT-07P-087-0418508-00

PATIENT
  Age: 83 Year
  Sex: Male

DRUGS (4)
  1. LEUPLIN SR FOR INJECTION KIT [Suspect]
     Indication: PROSTATE CANCER STAGE IV
     Route: 058
     Dates: start: 20060508, end: 20061106
  2. LEUPLIN SR FOR INJECTION KIT [Suspect]
     Dates: start: 20051115, end: 20060403
  3. BICALUTAMIDE [Concomitant]
     Indication: PROSTATE CANCER STAGE IV
     Route: 048
     Dates: start: 20060508, end: 20060803
  4. ESTRAMUSTINE PHOSPHATE SODIUM [Concomitant]
     Indication: PROSTATE CANCER STAGE IV
     Route: 048
     Dates: start: 20060911, end: 20061106

REACTIONS (2)
  - CARDIAC FAILURE [None]
  - PROSTATIC SPECIFIC ANTIGEN INCREASED [None]
